FAERS Safety Report 13472790 (Version 4)
Quarter: 2017Q2

REPORT INFORMATION
  Report Type: Report from Study
  Country: None (occurrence: ES)
  Receive Date: 20170424
  Receipt Date: 20170509
  Transmission Date: 20170830
  Serious: Yes (Life-Threatening, Hospitalization, Other)
  Sender: FDA-Public Use
  Company Number: ES-ABBVIE-17K-144-1950717-00

PATIENT
  Age: 53 Year
  Sex: Female

DRUGS (6)
  1. DUODOPA [Suspect]
     Active Substance: CARBIDOPA\LEVODOPA
     Dosage: DOSE INCREASED
     Route: 050
     Dates: start: 20170430
  2. CIPROFLOXACIN. [Suspect]
     Active Substance: CIPROFLOXACIN
     Indication: STOMA SITE INFECTION
     Route: 065
     Dates: start: 201704, end: 20170421
  3. DUODOPA [Suspect]
     Active Substance: CARBIDOPA\LEVODOPA
     Dosage: CONTINUOUS PERFUSION
     Route: 050
  4. DUODOPA [Suspect]
     Active Substance: CARBIDOPA\LEVODOPA
     Indication: PARKINSON^S DISEASE
     Route: 050
     Dates: start: 20140428
  5. PARACETAMOL [Suspect]
     Active Substance: ACETAMINOPHEN
     Indication: PAIN
     Route: 042
     Dates: start: 201704, end: 20170424
  6. PARACETAMOL [Suspect]
     Active Substance: ACETAMINOPHEN
     Indication: STOMA SITE INFECTION

REACTIONS (11)
  - Hepatic failure [Recovering/Resolving]
  - Discoloured vomit [Recovering/Resolving]
  - Encephalopathy [Recovering/Resolving]
  - Stoma site infection [Recovering/Resolving]
  - Gastrointestinal hypomotility [Not Recovered/Not Resolved]
  - Device dislocation [Not Recovered/Not Resolved]
  - Muscle rigidity [Recovering/Resolving]
  - Discomfort [Recovering/Resolving]
  - Staring [Recovering/Resolving]
  - Eye movement disorder [Recovering/Resolving]
  - Stoma site infection [Unknown]

NARRATIVE: CASE EVENT DATE: 201704
